FAERS Safety Report 21930858 (Version 1)
Quarter: 2023Q1

REPORT INFORMATION
  Report Type: Report from Study
  Country: US (occurrence: US)
  Receive Date: 20230131
  Receipt Date: 20230131
  Transmission Date: 20230418
  Serious: Yes (Other)
  Sender: FDA-Public Use
  Company Number: US-002147023-NVSC2022US303383

PATIENT
  Age: 54 Year
  Sex: Female

DRUGS (1)
  1. ENOXAPARIN SODIUM [Suspect]
     Active Substance: ENOXAPARIN SODIUM
     Indication: Product used for unknown indication
     Dosage: 40 MG, QD ( WITH 2 SYRINGES OF MEDICATION FOR 2 DAYS)
     Route: 065
     Dates: start: 20210901, end: 20210903

REACTIONS (3)
  - Hypersensitivity [Unknown]
  - Rash [Unknown]
  - Throat tightness [Unknown]

NARRATIVE: CASE EVENT DATE: 20211001
